FAERS Safety Report 10566742 (Version 4)
Quarter: 2017Q1

REPORT INFORMATION
  Report Type: Spontaneous
  Country: US (occurrence: US)
  Receive Date: 20141105
  Receipt Date: 20170203
  Transmission Date: 20170428
  Serious: Yes (Hospitalization, Other)
  Sender: FDA-Public Use
  Company Number: US-ELI_LILLY_AND_COMPANY-US201410010753

PATIENT
  Age: 58 Year
  Sex: Male
  Weight: 74.83 kg

DRUGS (10)
  1. AXIRON [Suspect]
     Active Substance: TESTOSTERONE
     Indication: HYPOGONADISM
  2. DEPO-TESTOSTERONE [Suspect]
     Active Substance: TESTOSTERONE CYPIONATE
     Dosage: 180 MG, OTHER
     Route: 030
  3. AXIRON [Suspect]
     Active Substance: TESTOSTERONE
     Indication: BLOOD TESTOSTERONE DECREASED
     Dosage: UNK, UNKNOWN
     Route: 065
     Dates: start: 201308, end: 201312
  4. ANDROGEL [Suspect]
     Active Substance: TESTOSTERONE
     Indication: BLOOD TESTOSTERONE DECREASED
     Dosage: UNK, UNKNOWN
     Route: 061
     Dates: start: 201110, end: 201212
  5. DEPO-TESTOSTERONE [Suspect]
     Active Substance: TESTOSTERONE CYPIONATE
     Indication: HYPOGONADISM
     Dosage: 140 MG, OTHER
     Route: 030
  6. PRILOSEC [Concomitant]
     Active Substance: OMEPRAZOLE MAGNESIUM
     Dosage: 20 MG, QD
     Route: 048
     Dates: start: 20131024
  7. ANDROGEL [Suspect]
     Active Substance: TESTOSTERONE
     Indication: HYPOGONADISM
  8. DEPO-TESTOSTERONE [Suspect]
     Active Substance: TESTOSTERONE CYPIONATE
     Indication: BLOOD TESTOSTERONE DECREASED
     Dosage: 160 MG, OTHER
     Route: 030
     Dates: start: 201204, end: 201308
  9. TESTOSTERONE. [Suspect]
     Active Substance: TESTOSTERONE
     Indication: ANDROGEN REPLACEMENT THERAPY
     Dosage: UNK, WEEKLY (1/W)
     Route: 065
     Dates: start: 20130206, end: 20130806
  10. ASPIRIN                            /00002701/ [Concomitant]
     Active Substance: ASPIRIN
     Dosage: 325 MG, QD
     Route: 048

REACTIONS (4)
  - Coronary artery disease [Unknown]
  - Acute myocardial infarction [Recovered/Resolved]
  - Angina pectoris [Unknown]
  - Chest pain [Unknown]

NARRATIVE: CASE EVENT DATE: 201310
